FAERS Safety Report 18840515 (Version 2)
Quarter: 2021Q1

REPORT INFORMATION
  Report Type: Report from Study
  Country: None (occurrence: US)
  Receive Date: 20210204
  Receipt Date: 20210224
  Transmission Date: 20210419
  Serious: Yes (Hospitalization, Other)
  Sender: FDA-Public Use
  Company Number: US-ABBVIE-20K-163-3704462-00

PATIENT
  Age: 48 Year
  Sex: Female

DRUGS (1)
  1. RINVOQ [Suspect]
     Active Substance: UPADACITINIB
     Indication: RHEUMATOID ARTHRITIS
     Route: 048
     Dates: start: 20200904, end: 20201209

REACTIONS (8)
  - COVID-19 [Recovered/Resolved]
  - Weight decreased [Unknown]
  - Feeling abnormal [Recovering/Resolving]
  - Abdominal pain [Not Recovered/Not Resolved]
  - COVID-19 pneumonia [Recovered/Resolved]
  - Pancreatitis viral [Recovering/Resolving]
  - Nephritis [Recovering/Resolving]
  - Back pain [Not Recovered/Not Resolved]

NARRATIVE: CASE EVENT DATE: 2020
